FAERS Safety Report 6755461-X (Version None)
Quarter: 2010Q2

REPORT INFORMATION
  Report Type: 
  Country: None (occurrence: None)
  Receive Date: 20100604
  Receipt Date: 20100521
  Transmission Date: 20101027
  Serious: Yes (Death, Other)
  Sender: FDA-Public Use
  Company Number: US-ASTRAZENECA-2010SE25287

PATIENT
  Age: 681 Month
  Sex: Female

DRUGS (16)
  1. SEROQUEL [Suspect]
     Dosage: 100-200 MG
     Route: 048
     Dates: start: 20030205
  2. LISINOPRIL [Concomitant]
     Dosage: 5-40 MG
     Dates: start: 20030207
  3. LEXAPRO [Concomitant]
     Dosage: 10-20 MG
     Route: 048
     Dates: start: 20030205
  4. SKELAXIN [Concomitant]
     Route: 048
     Dates: start: 20020929
  5. NEXIUM [Concomitant]
     Dates: start: 20021122
  6. COUMADIN [Concomitant]
     Dosage: 1-3 MG
     Dates: start: 20021017
  7. PAXIL [Concomitant]
     Dates: start: 20030129
  8. TRAZODONE HCL [Concomitant]
     Dates: start: 20021030
  9. LANOXIN [Concomitant]
     Dates: start: 20021008
  10. ATENOLOL [Concomitant]
     Dates: start: 20030110
  11. AMBIEN [Concomitant]
     Dates: start: 20021025
  12. LONOX [Concomitant]
     Dates: start: 20021017
  13. MECLIZINE [Concomitant]
     Dates: start: 20021008
  14. CLONAZEPAM [Concomitant]
     Dates: start: 20021122
  15. WELLBUTRIN XL [Concomitant]
  16. LASIX [Concomitant]
     Dosage: 10-20 MG
     Dates: start: 20030205

REACTIONS (13)
  - ACUTE RESPIRATORY FAILURE [None]
  - CARDIAC ARREST [None]
  - CARDIAC VALVE DISEASE [None]
  - DEPRESSION [None]
  - METABOLIC ACIDOSIS [None]
  - OBESITY [None]
  - OSTEOARTHRITIS [None]
  - OSTEOMALACIA [None]
  - OSTEOPOROSIS [None]
  - PAIN [None]
  - PANCREATITIS ACUTE [None]
  - SEPTIC SHOCK [None]
  - SUPRAVENTRICULAR TACHYCARDIA [None]
